FAERS Safety Report 23079325 (Version 1)
Quarter: 2023Q4

REPORT INFORMATION
  Report Type: Spontaneous
  Country: US (occurrence: US)
  Receive Date: 20231018
  Receipt Date: 20231018
  Transmission Date: 20240109
  Serious: No
  Sender: FDA-Public Use
  Company Number: US-JNJFOC-20231037563

PATIENT
  Age: 18 Year
  Sex: Male

DRUGS (1)
  1. TOPIRAMATE [Suspect]
     Active Substance: TOPIRAMATE
     Indication: Migraine
     Route: 048
     Dates: end: 20110204

REACTIONS (1)
  - Somnolence [Unknown]

NARRATIVE: CASE EVENT DATE: 20110101
